FAERS Safety Report 8577191-4 (Version None)
Quarter: 2012Q3

REPORT INFORMATION
  Report Type: 
  Country: None (occurrence: None)
  Receive Date: 20120807
  Receipt Date: 20120502
  Transmission Date: 20120928
  Serious: Yes (Hospitalization)
  Sender: FDA-Public Use
  Company Number: GB-BAXTER-2012BAX012687

PATIENT
  Sex: Male

DRUGS (1)
  1. SODIUM CHLORIDE 0.9% INTRAVENOUS INFUSION BP [Suspect]
     Dosage: UNKNOWN
     Route: 042

REACTIONS (4)
  - DEVICE RELATED INFECTION [None]
  - DEHYDRATION [None]
  - HIP FRACTURE [None]
  - FALL [None]
